FAERS Safety Report 9487178 (Version 1)
Quarter: 2013Q3

REPORT INFORMATION
  Report Type: Spontaneous
  Country: CN (occurrence: CN)
  Receive Date: 20130829
  Receipt Date: 20130829
  Transmission Date: 20140515
  Serious: Yes (Other)
  Sender: FDA-Public Use
  Company Number: CN-BRISTOL-MYERS SQUIBB COMPANY-19207166

PATIENT
  Age: 28 Year
  Sex: Female

DRUGS (3)
  1. BARACLUDE [Suspect]
     Route: 048
  2. PANTOPRAZOLE [Concomitant]
  3. GLUCOCORTICOID [Concomitant]

REACTIONS (1)
  - Haemolytic anaemia [Unknown]
